FAERS Safety Report 16108555 (Version 1)
Quarter: 2019Q1

REPORT INFORMATION
  Report Type: Report from Study
  Country: None (occurrence: US)
  Receive Date: 20190323
  Receipt Date: 20190323
  Transmission Date: 20190418
  Serious: Yes (Hospitalization)
  Sender: FDA-Public Use
  Company Number: US-ABBVIE-19K-163-2710997-00

PATIENT
  Age: 52 Year
  Sex: Male

DRUGS (1)
  1. HUMIRA [Suspect]
     Active Substance: ADALIMUMAB
     Indication: AUTOIMMUNE PANCREATITIS
     Dosage: LOADING DOSE
     Route: 058
     Dates: start: 20190222

REACTIONS (5)
  - Emotional disorder [Not Recovered/Not Resolved]
  - Malaise [Unknown]
  - Depression [Not Recovered/Not Resolved]
  - Off label use [Unknown]
  - Panic attack [Not Recovered/Not Resolved]

NARRATIVE: CASE EVENT DATE: 2019
